FAERS Safety Report 19502236 (Version 3)
Quarter: 2021Q3

REPORT INFORMATION
  Report Type: Spontaneous
  Country: US (occurrence: US)
  Receive Date: 20210707
  Receipt Date: 20210826
  Transmission Date: 20211014
  Serious: No
  Sender: FDA-Public Use
  Company Number: US-PFIZER INC-2021674913

PATIENT
  Age: 13 Year
  Sex: Female

DRUGS (3)
  1. LEVOTHYROXINE. [Concomitant]
     Active Substance: LEVOTHYROXINE
     Indication: THYROID DISORDER
     Dosage: 0.5 MG, 1X/DAY (0.5MG, ONE TABLET, BY MOUTH, ONCE DAILY (BEFORE A MEAL IN THE MORNING)
     Route: 048
  2. GENOTROPIN [Suspect]
     Active Substance: SOMATROPIN
     Indication: GROWTH HORMONE DEFICIENCY
     Dosage: 0.8 MG, 1X/DAY
  3. GENOTROPIN [Suspect]
     Active Substance: SOMATROPIN
     Dosage: 1 MG, 1X/DAY (1MG, INJECTION, ONCE DAILY IN THE EVENING)
     Dates: start: 202102

REACTIONS (3)
  - Drug ineffective [Unknown]
  - Device use error [Unknown]
  - Device issue [Unknown]
